FAERS Safety Report 10781157 (Version 2)
Quarter: 2015Q2

REPORT INFORMATION
  Report Type: Spontaneous
  Country: US (occurrence: US)
  Receive Date: 20150210
  Receipt Date: 20150529
  Transmission Date: 20150821
  Serious: No
  Sender: FDA-Public Use
  Company Number: US-PFIZER INC-2014326827

PATIENT
  Age: 72 Year
  Sex: Female

DRUGS (5)
  1. DILAUDID [Concomitant]
     Active Substance: HYDROMORPHONE HYDROCHLORIDE
     Indication: PAIN
     Dosage: UNK
  2. ZYVOX [Suspect]
     Active Substance: LINEZOLID
     Indication: CELLULITIS
  3. ZYVOX [Suspect]
     Active Substance: LINEZOLID
     Indication: CELLULITIS
  4. ZYVOX [Suspect]
     Active Substance: LINEZOLID
     Indication: LYMPHOEDEMA
     Dosage: 600 MG, 2X/DAY
     Route: 042
     Dates: start: 20140916, end: 20140919
  5. ZYVOX [Suspect]
     Active Substance: LINEZOLID
     Indication: LYMPHOEDEMA
     Dosage: UNK, 2X/DAY
     Route: 048
     Dates: start: 201409, end: 20140923

REACTIONS (5)
  - Nausea [Recovered/Resolved]
  - Rash [Unknown]
  - Vaginal infection [Recovered/Resolved]
  - Perineal rash [Unknown]
  - Vomiting [Recovered/Resolved]
